FAERS Safety Report 8002620-4 (Version None)
Quarter: 2011Q4

REPORT INFORMATION
  Report Type: 
  Country: None (occurrence: None)
  Receive Date: 20111222
  Receipt Date: 20111220
  Transmission Date: 20120403
  Serious: Yes (Other)
  Sender: FDA-Public Use
  Company Number: HR-GLAXOSMITHKLINE-B0736992A

PATIENT
  Age: 47 Year
  Sex: Female

DRUGS (1)
  1. PROPAFENONE HCL [Suspect]
     Indication: ATRIAL FIBRILLATION
     Dosage: 150MG THREE TIMES PER DAY
     Route: 048
     Dates: start: 20110516, end: 20110606

REACTIONS (7)
  - FATIGUE [None]
  - CHEST PAIN [None]
  - VERTIGO [None]
  - VISION BLURRED [None]
  - PLATELET COUNT DECREASED [None]
  - DRY MOUTH [None]
  - HEADACHE [None]
